FAERS Safety Report 18619883 (Version 1)
Quarter: 2020Q4

REPORT INFORMATION
  Report Type: Spontaneous
  Country: DE (occurrence: DE)
  Receive Date: 20201215
  Receipt Date: 20201215
  Transmission Date: 20210114
  Serious: Yes (Hospitalization)
  Sender: FDA-Public Use
  Company Number: DE-ALLERGAN-2047755US

PATIENT
  Sex: Female

DRUGS (10)
  1. APIDRA [Concomitant]
     Active Substance: INSULIN GLULISINE
     Dosage: 4 IU, QAM
     Route: 058
  2. METFORMIN [Concomitant]
     Active Substance: METFORMIN HYDROCHLORIDE
     Dosage: 1000 MG, BID
  3. DAPAGLIFLOZIN. [Concomitant]
     Active Substance: DAPAGLIFLOZIN
     Dosage: 10 MG, QAM
  4. PYLERA [Suspect]
     Active Substance: BISMUTH SUBCITRATE POTASSIUM\METRONIDAZOLE\TETRACYCLINE HYDROCHLORIDE
     Indication: PRODUCT USED FOR UNKNOWN INDICATION
     Dosage: 3 DF, QID
  5. LEVEMIR [Concomitant]
     Active Substance: INSULIN DETEMIR
     Dosage: 38 IU, QPM
  6. ESOMEPRAZOL [Concomitant]
     Active Substance: ESOMEPRAZOLE
     Dosage: 40 MG, BID
  7. APIDRA [Concomitant]
     Active Substance: INSULIN GLULISINE
     Dosage: 8 IU, 0-1-0-0
     Route: 058
  8. ENALAPRIL [Concomitant]
     Active Substance: ENALAPRIL
     Dosage: 5 MG, BID
  9. ATORVASTATIN [Concomitant]
     Active Substance: ATORVASTATIN
     Dosage: 20 MG, 0-0-1-0
  10. APIDRA [Concomitant]
     Active Substance: INSULIN GLULISINE
     Dosage: 7 IU,0-0-1-0
     Route: 058

REACTIONS (6)
  - Headache [Unknown]
  - Nausea [Unknown]
  - Chest pain [Unknown]
  - Vomiting [Unknown]
  - Sleep disorder [Unknown]
  - Musculoskeletal discomfort [Unknown]
